FAERS Safety Report 8934722 (Version 3)
Quarter: 2013Q1

REPORT INFORMATION
  Report Type: Report from Study
  Country: DE (occurrence: DE)
  Receive Date: 20121129
  Receipt Date: 20130102
  Transmission Date: 20140127
  Serious: Yes (Hospitalization)
  Sender: FDA-Public Use
  Company Number: DE-TEVA-365221USA

PATIENT
  Age: 73 Year
  Sex: Male
  Weight: 81 kg

DRUGS (5)
  1. TREANDA [Suspect]
     Indication: PLASMA CELL MYELOMA
     Dosage: 75 MG/M2 DAILY;
     Route: 042
     Dates: start: 20120917
  2. TREANDA [Suspect]
     Dates: start: 20121030
  3. LENALIDOMIDE [Suspect]
     Indication: PLASMA CELL MYELOMA
     Route: 048
     Dates: start: 20120917
  4. PREDNISONE [Suspect]
     Indication: PLASMA CELL MYELOMA
     Route: 048
     Dates: start: 20120917
  5. PREDNISONE [Suspect]
     Dates: start: 20121101

REACTIONS (3)
  - Sepsis [Recovered/Resolved]
  - Confusional state [Not Recovered/Not Resolved]
  - Hallucination [Not Recovered/Not Resolved]
